FAERS Safety Report 8990971 (Version 1)
Quarter: 2012Q4

REPORT INFORMATION
  Report Type: Spontaneous
  Country: US (occurrence: None)
  Receive Date: 20121227
  Receipt Date: 20121227
  Transmission Date: 20130627
  Serious: No
  Sender: FDA-Public Use
  Company Number: None

PATIENT
  Age: 62 Year
  Sex: Female

DRUGS (2)
  1. ESCITALOPRAM OXALATE [Suspect]
     Indication: DEPRESSION
     Dosage: 5mg  1 daily  Oral
     Route: 048
     Dates: start: 201206
  2. SERTRALINE HCL [Suspect]
     Indication: DEPRESSION
     Dosage: 25mg  1 x daily  Oral
     Route: 048
     Dates: start: 201006, end: 201007

REACTIONS (2)
  - Product substitution issue [None]
  - Drug ineffective [None]
